FAERS Safety Report 17175592 (Version 4)
Quarter: 2020Q1

REPORT INFORMATION
  Report Type: Spontaneous
  Country: US (occurrence: US)
  Receive Date: 20191219
  Receipt Date: 20200130
  Transmission Date: 20200409
  Serious: Yes (Life-Threatening, Hospitalization, Other)
  Sender: FDA-Public Use
  Company Number: US-009507513-1912USA005540

PATIENT
  Sex: Male

DRUGS (1)
  1. SEGLUROMET [Suspect]
     Active Substance: ERTUGLIFLOZIN PIDOLATE\METFORMIN HYDROCHLORIDE
     Indication: DIABETES MELLITUS
     Dosage: 2.5/1000 (UNIT NOT SPECIFIED), TWICE DAILY
     Route: 048
     Dates: start: 20190820, end: 20190912

REACTIONS (1)
  - Diabetic ketoacidosis [Recovered/Resolved]

NARRATIVE: CASE EVENT DATE: 2019
